FAERS Safety Report 9828188 (Version 1)
Quarter: 2014Q1

REPORT INFORMATION
  Report Type: Spontaneous
  Country: US (occurrence: US)
  Receive Date: 20140117
  Receipt Date: 20140117
  Transmission Date: 20141002
  Serious: Yes (Hospitalization)
  Sender: FDA-Public Use
  Company Number: US-BMSGILMSD-2011-0038270

PATIENT
  Age: 48 Year
  Sex: Male

DRUGS (4)
  1. ATRIPLA [Suspect]
     Indication: HIV INFECTION
     Dates: start: 20110401
  2. ASPARIN [Concomitant]
  3. VITAMIN C [Concomitant]
  4. VOLTARIN [Concomitant]

REACTIONS (1)
  - Convulsion [Unknown]
